FAERS Safety Report 8385952-X (Version None)
Quarter: 2012Q2

REPORT INFORMATION
  Report Type: 
  Country: None (occurrence: None)
  Receive Date: 20120523
  Receipt Date: 20120511
  Transmission Date: 20120825
  Serious: Yes (Other)
  Sender: FDA-Public Use
  Company Number: 2012SP025295

PATIENT
  Sex: Female

DRUGS (3)
  1. NEULACTIL [Concomitant]
  2. LITHIUM CARBONATE [Concomitant]
  3. SAPHRIS [Suspect]
     Indication: PSYCHOTIC DISORDER
     Dosage: 5 MG;ONCE;SL
     Route: 060
     Dates: start: 20120510, end: 20120510

REACTIONS (2)
  - OFF LABEL USE [None]
  - DRUG HYPERSENSITIVITY [None]
